FAERS Safety Report 10294881 (Version 2)
Quarter: 2014Q3

REPORT INFORMATION
  Report Type: Report from Study
  Country: CA (occurrence: CA)
  Receive Date: 20140710
  Receipt Date: 20140710
  Transmission Date: 20150326
  Serious: Yes (Death)
  Sender: FDA-Public Use
  Company Number: CA-INCYTE CORPORATION-2013IN000445

PATIENT
  Age: 62 Year
  Sex: Male

DRUGS (1)
  1. JAKAFI [Suspect]
     Active Substance: RUXOLITINIB
     Indication: MYELOFIBROSIS
     Dosage: 20 MG, BID
     Route: 048
     Dates: start: 20130225

REACTIONS (8)
  - Contusion [Unknown]
  - Nausea [Unknown]
  - Fatigue [Unknown]
  - Anger [Unknown]
  - Death [Fatal]
  - Dyspnoea [Unknown]
  - Headache [Unknown]
  - Injury [Unknown]

NARRATIVE: CASE EVENT DATE: 20130225
